FAERS Safety Report 24079095 (Version 1)
Quarter: 2024Q3

REPORT INFORMATION
  Report Type: Spontaneous
  Country: US (occurrence: US)
  Receive Date: 20240711
  Receipt Date: 20240711
  Transmission Date: 20241016
  Serious: Yes (Other)
  Sender: PFIZER
  Company Number: US-PFIZER INC-PV202400089961

PATIENT
  Age: 29 Year
  Sex: Female

DRUGS (3)
  1. MORPHINE SULFATE [Suspect]
     Active Substance: MORPHINE SULFATE
     Indication: Cancer pain
     Dosage: 300 MEQ/D
  2. ROPIVACAINE [Concomitant]
     Active Substance: ROPIVACAINE
     Indication: Cancer pain
     Dosage: 0.2 % AT 10 ML/H, (PENG INFUSION)
  3. ACETAMINOPHEN\HYDROCODONE [Concomitant]
     Active Substance: ACETAMINOPHEN\HYDROCODONE
     Indication: Cancer pain
     Dosage: 5 MG TO 325 MG, AS NEEDED
     Route: 048

REACTIONS (2)
  - Lethargy [Recovered/Resolved]
  - Hypersomnia [Unknown]
